FAERS Safety Report 8118827 (Version 3)
Quarter: 2013Q3

REPORT INFORMATION
  Report Type: Spontaneous
  Country: GB (occurrence: GB)
  Receive Date: 20110902
  Receipt Date: 20130812
  Transmission Date: 20140515
  Serious: Yes (Other)
  Sender: FDA-Public Use
  Company Number: GB-B.I. PHARMACEUTICALS,INC./RIDGEFIELD-2011-UK-00919UK

PATIENT
  Age: 79 Year
  Sex: Female

DRUGS (5)
  1. DABIGATRAN [Suspect]
     Indication: ATRIAL FIBRILLATION
     Route: 065
  2. DABIGATRAN [Suspect]
     Indication: CEREBROVASCULAR ACCIDENT PROPHYLAXIS
  3. MULTAQ [Suspect]
     Indication: ATRIAL FIBRILLATION
     Dosage: 400 MG TWICE DAILY
     Route: 048
     Dates: start: 20110701, end: 20110820
  4. BISOPROLOL [Concomitant]
     Indication: ATRIAL FIBRILLATION
     Dosage: 1/1DAY
     Route: 048
     Dates: start: 2009
  5. SIMVASTATINA [Concomitant]
     Indication: HYPERLIPIDAEMIA
     Dosage: 1/1DAY
     Route: 048
     Dates: start: 2005

REACTIONS (4)
  - Rectal haemorrhage [Recovered/Resolved]
  - Cardiac tamponade [Recovered/Resolved]
  - Diarrhoea [Recovered/Resolved]
  - Drug interaction [Recovered/Resolved]
